FAERS Safety Report 10207092 (Version 1)
Quarter: 2014Q2

REPORT INFORMATION
  Report Type: Spontaneous
  Country: US (occurrence: None)
  Receive Date: 20140527
  Receipt Date: 20140527
  Transmission Date: 20141212
  Serious: Yes (Hospitalization)
  Sender: FDA-Public Use
  Company Number: None

PATIENT
  Age: 66 Year
  Sex: Female

DRUGS (6)
  1. NITROFURANTOIN [Suspect]
     Route: 048
     Dates: start: 20120612
  2. ATENOLOL [Concomitant]
  3. AMLODIPINE [Concomitant]
  4. ESOMEPRAZOLE [Concomitant]
  5. LACTOBACILLUS GRANULES [Concomitant]
  6. SERTRALINE [Concomitant]

REACTIONS (7)
  - Urinary tract infection [None]
  - Klebsiella infection [None]
  - Pelvi-ureteric obstruction [None]
  - Pyrexia [None]
  - Malaise [None]
  - Pollakiuria [None]
  - Nausea [None]
